FAERS Safety Report 9789496 (Version 1)
Quarter: 2013Q4

REPORT INFORMATION
  Report Type: Report from Study
  Country: US (occurrence: US)
  Receive Date: 20131231
  Receipt Date: 20131231
  Transmission Date: 20140711
  Serious: Yes (Other)
  Sender: FDA-Public Use
  Company Number: US-ROCHE-1324886

PATIENT
  Age: 13 Year
  Sex: Male
  Weight: 44.8 kg

DRUGS (3)
  1. NUTROPIN AQ [Suspect]
     Indication: BODY HEIGHT BELOW NORMAL
     Dosage: 6 X WEEK
     Route: 058
     Dates: start: 201207
  2. VYVANSE [Concomitant]
     Route: 048
  3. OXANDRIN [Concomitant]
     Route: 048
     Dates: start: 20131121

REACTIONS (5)
  - Arthralgia [Unknown]
  - Acne [Unknown]
  - Diarrhoea [Unknown]
  - Decreased appetite [Unknown]
  - Weight fluctuation [Unknown]
